FAERS Safety Report 4853171-7 (Version None)
Quarter: 2005Q4

REPORT INFORMATION
  Report Type: 
  Country: None (occurrence: None)
  Receive Date: 20051212
  Receipt Date: 20050914
  Transmission Date: 20060501
  Serious: Yes (Hospitalization)
  Sender: FDA-Public Use
  Company Number: 2005-CZ-01080

PATIENT
  Age: 79 Year
  Sex: Female

DRUGS (13)
  1. TRAMADOL HYDROCHLORIDE [Suspect]
     Indication: POSTOPERATIVE ANALGESIA
     Dosage: 50-100 MG, 6 HOURLY
  2. PARACETAMOL [Concomitant]
  3. INDAPAMIDE [Concomitant]
  4. ATENOLOL [Concomitant]
  5. VALSARTAN [Concomitant]
  6. TIAPROFENIC ACID [Concomitant]
  7. BUPIVACAINE [Concomitant]
  8. DIAMORPHINE [Concomitant]
  9. FENTANYL [Concomitant]
  10. PROPOFOL [Concomitant]
  11. ONDANSETRON [Concomitant]
  12. DEXAMETHASONE [Concomitant]
  13. CYXLIZINE [Concomitant]

REACTIONS (10)
  - CHEST PAIN [None]
  - CONFUSIONAL STATE [None]
  - DEHYDRATION [None]
  - FEELING ABNORMAL [None]
  - FLUID RETENTION [None]
  - GRAND MAL CONVULSION [None]
  - HYPONATRAEMIA [None]
  - KNEE OPERATION [None]
  - NAUSEA [None]
  - VOMITING [None]
